FAERS Safety Report 11394652 (Version 2)
Quarter: 2015Q3

REPORT INFORMATION
  Report Type: Spontaneous
  Country: US (occurrence: US)
  Receive Date: 20150819
  Receipt Date: 20150831
  Transmission Date: 20151125
  Serious: Yes (Other)
  Sender: FDA-Public Use
  Company Number: US-SHIRE-US201510214

PATIENT
  Sex: Female

DRUGS (2)
  1. LIALDA [Suspect]
     Active Substance: MESALAMINE
     Indication: COLITIS ULCERATIVE
     Dosage: 1.2 G, 2X/DAY:BID
     Route: 048
     Dates: start: 201410
  2. LIALDA [Suspect]
     Active Substance: MESALAMINE
     Dosage: UNK, UNKNOWN
     Route: 048

REACTIONS (5)
  - Inappropriate schedule of drug administration [Unknown]
  - Dyspepsia [Unknown]
  - Arthropathy [Not Recovered/Not Resolved]
  - Constipation [Unknown]
  - Drug dose omission [Recovered/Resolved]

NARRATIVE: CASE EVENT DATE: 201410
